FAERS Safety Report 6235351-1 (Version None)
Quarter: 2009Q2

REPORT INFORMATION
  Report Type: 
  Country: None (occurrence: None)
  Receive Date: 20090615
  Receipt Date: 20090529
  Transmission Date: 20091009
  Serious: Yes (Hospitalization)
  Sender: FDA-Public Use
  Company Number: 8037061

PATIENT
  Age: 49 Year
  Sex: Female
  Weight: 57.7 kg

DRUGS (6)
  1. CDP870 [Suspect]
     Indication: RHEUMATOID ARTHRITIS
     Dosage: 200 MG 1/2W SC
     Route: 058
     Dates: start: 20050825, end: 20060810
  2. CDP870 [Suspect]
     Indication: RHEUMATOID ARTHRITIS
     Dosage: 400 MG 1/2W SC
     Route: 058
     Dates: start: 20060823, end: 20071227
  3. CDP870 [Suspect]
     Indication: RHEUMATOID ARTHRITIS
     Dosage: 200 MG 1/2W SC
     Route: 058
     Dates: start: 20071227, end: 20080821
  4. METHOTREXATE [Concomitant]
  5. FOLIC ACID [Concomitant]
  6. PREDNISONE [Concomitant]

REACTIONS (9)
  - BLOOD GLUCOSE INCREASED [None]
  - BRONCHITIS [None]
  - CHRONIC OBSTRUCTIVE PULMONARY DISEASE [None]
  - CYSTITIS INTERSTITIAL [None]
  - DYSLIPIDAEMIA [None]
  - GASTRITIS [None]
  - HYPERTENSION [None]
  - PNEUMONIA [None]
  - TYPE 2 DIABETES MELLITUS [None]
